FAERS Safety Report 9788823 (Version 1)
Quarter: 2013Q4

REPORT INFORMATION
  Report Type: Spontaneous
  Country: FR (occurrence: FR)
  Receive Date: 20131230
  Receipt Date: 20131230
  Transmission Date: 20140711
  Serious: Yes (Other)
  Sender: FDA-Public Use
  Company Number: FR-TEVA-453357ISR

PATIENT
  Sex: Male

DRUGS (3)
  1. BUPRENORPHINE [Suspect]
     Indication: SARCOIDOSIS
     Dosage: 8 MILLIGRAM DAILY;
  2. INSTANYL [Concomitant]
     Indication: SARCOIDOSIS
  3. DUROGESIC [Concomitant]

REACTIONS (3)
  - Loss of consciousness [Not Recovered/Not Resolved]
  - Malaise [Not Recovered/Not Resolved]
  - Pain [Unknown]
